FAERS Safety Report 5148292-8 (Version None)
Quarter: 2006Q4

REPORT INFORMATION
  Report Type: 
  Country: None (occurrence: None)
  Receive Date: 20061106
  Receipt Date: 20061020
  Transmission Date: 20070319
  Serious: Yes (Hospitalization)
  Sender: FDA-Public Use
  Company Number: 227518

PATIENT
  Age: 54 Year
  Sex: Female

DRUGS (4)
  1. RAPTIVA [Suspect]
     Indication: PSORIASIS
     Dosage: 0.8 ML, 1/WEEK, SUBCUTANEOUS
     Route: 058
     Dates: start: 20050411, end: 20060615
  2. CORTANCYL (PREDNISONE) [Concomitant]
  3. CELLCEPT [Concomitant]
  4. IMURAN [Concomitant]

REACTIONS (14)
  - ARTHRITIS [None]
  - AUTOIMMUNE DISORDER [None]
  - AUTOIMMUNE HEPATITIS [None]
  - CD4 LYMPHOCYTES INCREASED [None]
  - CD8 LYMPHOCYTES INCREASED [None]
  - CHOLELITHIASIS [None]
  - CYTOLYTIC HEPATITIS [None]
  - DRUG TOXICITY [None]
  - FATIGUE [None]
  - HEPATIC STEATOSIS [None]
  - HEPATITIS CHOLESTATIC [None]
  - PERICARDIAL EFFUSION [None]
  - PERICARDITIS [None]
  - TENDON DISORDER [None]
